FAERS Safety Report 10703286 (Version 1)
Quarter: 2015Q1

REPORT INFORMATION
  Report Type: Spontaneous
  Country: CN (occurrence: CN)
  Receive Date: 20150112
  Receipt Date: 20150112
  Transmission Date: 20150721
  Serious: Yes (Death, Other)
  Sender: FDA-Public Use
  Company Number: CN-ROCHE-1519247

PATIENT
  Age: 57 Year
  Sex: Male
  Weight: 51.5 kg

DRUGS (8)
  1. AVASTIN [Suspect]
     Active Substance: BEVACIZUMAB
     Indication: COLON CANCER
     Dosage: 300MG WITH 250ML NORMAL SALINE, LAST DOSE ADMINISTERED ON 17/MAY/2014.
     Route: 041
  2. 5-FLUOROURACIL [Suspect]
     Active Substance: FLUOROURACIL
     Indication: COLON CANCER
     Dosage: 0.5G WITH 20ML NORMAL SALINE, LAST DOSE ADMINISTERED ON 17/MAY/2014
     Route: 041
  3. SODIUM CHLORIDE. [Concomitant]
     Active Substance: SODIUM CHLORIDE
     Indication: COLON CANCER
     Dosage: LAST DOSE ADMINISTERED ON 17/MAY/2014
     Route: 041
  4. SODIUM CHLORIDE. [Concomitant]
     Active Substance: SODIUM CHLORIDE
     Route: 041
  5. ELOXATIN [Suspect]
     Active Substance: OXALIPLATIN
     Indication: COLON CANCER
     Dosage: 150MG WITH 500ML 5% GLUCOSE SODIUM, LAST DOSE ADMINISTERED ON 17/MAY/2014
     Route: 041
  6. 5-FLUOROURACIL [Suspect]
     Active Substance: FLUOROURACIL
     Dosage: 4.0G WITH 50ML NORMAL SALINE 46 HOURS AFTER DAY 1
     Route: 041
  7. CALCIUM FOLINATE [Suspect]
     Active Substance: LEUCOVORIN CALCIUM
     Indication: COLON CANCER
     Dosage: 700MG WITH 250ML NORMAL SALINE, LAST DOSE ADMINISTERED ON 17/MAY/2014
     Route: 041
  8. GLUCOSE INJECTION [Concomitant]
     Indication: COLON CANCER
     Dosage: LAST DOSE ADMINISTERED ON 17/MAY/2014
     Route: 041

REACTIONS (4)
  - Completed suicide [Fatal]
  - Bone marrow failure [Not Recovered/Not Resolved]
  - Neurotoxicity [Not Recovered/Not Resolved]
  - Anxiety [Not Recovered/Not Resolved]

NARRATIVE: CASE EVENT DATE: 20140624
